FAERS Safety Report 15438861 (Version 1)
Quarter: 2018Q3

REPORT INFORMATION
  Report Type: Spontaneous
  Country: DE (occurrence: DE)
  Receive Date: 20180928
  Receipt Date: 20180928
  Transmission Date: 20181010
  Serious: Yes (Congenital Anomaly, Other)
  Sender: FDA-Public Use
  Company Number: DE-AUROBINDO-AUR-APL-2018-047540

PATIENT
  Age: 1 Day
  Sex: Male
  Weight: 3.33 kg

DRUGS (5)
  1. L?THYROXIN HENNING [Concomitant]
     Active Substance: LEVOTHYROXINE SODIUM
     Indication: THYROID HORMONE REPLACEMENT THERAPY
     Dosage: 200 [?G/D ]
     Route: 064
     Dates: start: 20170626, end: 20180411
  2. FOLIC ACID. [Concomitant]
     Active Substance: FOLIC ACID
     Indication: PROPHYLAXIS OF NEURAL TUBE DEFECT
     Dosage: 0.8 [MG/D ]/ 0.4?0.8 MG/D ()
     Route: 064
     Dates: start: 20170626, end: 20180411
  3. QUETIAPINE. [Suspect]
     Active Substance: QUETIAPINE
     Indication: BIPOLAR DISORDER
     Dosage: 50 [MG/D ]
     Route: 064
     Dates: start: 20170626, end: 20180411
  4. OXYTOCIN. [Concomitant]
     Active Substance: OXYTOCIN
     Indication: LABOUR INDUCTION
     Dosage: UNK
     Route: 064
     Dates: start: 20180411, end: 20180411
  5. HYPNOREX [Suspect]
     Active Substance: LITHIUM CARBONATE
     Indication: BIPOLAR DISORDER
     Dosage: 1400 [MG/D ]/ DOSAGE INITIALLY 1000MG/D, INCREASED UP TO 1400MG/D, (UP TO 7 SINGLE DOSES PER DAY) ()
     Route: 064
     Dates: start: 20170626, end: 20180411

REACTIONS (5)
  - Patent ductus arteriosus [Unknown]
  - Hypoglycaemia neonatal [Recovered/Resolved]
  - Convulsion neonatal [Recovered/Resolved]
  - Respiratory disorder neonatal [Recovered/Resolved]
  - Selective eating disorder [Recovered/Resolved]

NARRATIVE: CASE EVENT DATE: 20180411
